FAERS Safety Report 6789803-6 (Version None)
Quarter: 2010Q2

REPORT INFORMATION
  Report Type: 
  Country: None (occurrence: None)
  Receive Date: 20100624
  Receipt Date: 20100611
  Transmission Date: 20101027
  Serious: Yes (Hospitalization, Other)
  Sender: FDA-Public Use
  Company Number: US-BAYER-201010377NA

PATIENT
  Age: 34 Year
  Sex: Female
  Weight: 91 kg

DRUGS (6)
  1. YAZ [Suspect]
     Indication: DRUG USE FOR UNKNOWN INDICATION
     Route: 048
     Dates: start: 20070501, end: 20071101
  2. ANTIBIOTICS [Concomitant]
     Dates: start: 20050101, end: 20080101
  3. MAXZIDE [Concomitant]
     Dates: start: 20050101
  4. ADVIL LIQUI-GELS [Concomitant]
  5. ALEVE (CAPLET) [Concomitant]
  6. MOTRIN [Concomitant]

REACTIONS (5)
  - DEEP VEIN THROMBOSIS [None]
  - GAIT DISTURBANCE [None]
  - MUSCLE SPASMS [None]
  - PAIN IN EXTREMITY [None]
  - PULMONARY EMBOLISM [None]
